FAERS Safety Report 6152488-6 (Version None)
Quarter: 2009Q2

REPORT INFORMATION
  Report Type: 
  Country: None (occurrence: None)
  Receive Date: 20090413
  Receipt Date: 20090401
  Transmission Date: 20091009
  Serious: Yes (Other)
  Sender: FDA-Public Use
  Company Number: PHHY2009JP09434

PATIENT
  Sex: Female

DRUGS (1)
  1. MENOAID COMBIPTACH [Suspect]
     Indication: MENOPAUSAL SYMPTOMS
     Dosage: 1 DF, TIW
     Route: 062
     Dates: start: 20090127, end: 20090303

REACTIONS (8)
  - ANAEMIA [None]
  - DIZZINESS POSTURAL [None]
  - DYSSTASIA [None]
  - GENITAL HAEMORRHAGE [None]
  - HOT FLUSH [None]
  - MENOMETRORRHAGIA [None]
  - MUSCULOSKELETAL STIFFNESS [None]
  - PALPITATIONS [None]
